FAERS Safety Report 24916284 (Version 1)
Quarter: 2025Q1

REPORT INFORMATION
  Report Type: Spontaneous
  Country: US (occurrence: None)
  Receive Date: 20250131
  Receipt Date: 20250131
  Transmission Date: 20250409
  Serious: No
  Sender: FDA-CTU
  Company Number: None

PATIENT
  Age: 33 Year
  Sex: Male
  Weight: 90 kg

DRUGS (1)
  1. MUPIROCIN [Suspect]
     Active Substance: MUPIROCIN
     Indication: Infection

REACTIONS (2)
  - Pruritus [None]
  - Anaphylactic reaction [None]

NARRATIVE: CASE EVENT DATE: 20241023
